FAERS Safety Report 6686167-3 (Version None)
Quarter: 2010Q2

REPORT INFORMATION
  Report Type: 
  Country: None (occurrence: None)
  Receive Date: 20100419
  Receipt Date: 20100409
  Transmission Date: 20101027
  Serious: Yes (Other)
  Sender: FDA-Public Use
  Company Number: PHHY2010MX11911

PATIENT
  Age: 78 Year
  Sex: Female

DRUGS (2)
  1. DIOVAN [Suspect]
     Indication: HYPERTENSION
     Dosage: 160 MG DAILY,1 TABLET/DAY
     Route: 048
     Dates: start: 20020801, end: 20100201
  2. LOSARTAN POTASSIUM [Concomitant]

REACTIONS (6)
  - DEVICE FAILURE [None]
  - FALL [None]
  - HIP FRACTURE [None]
  - IMMOBILE [None]
  - IMMOBILISATION PROLONGED [None]
  - PROSTHESIS IMPLANTATION [None]
